FAERS Safety Report 13717086 (Version 1)
Quarter: 2017Q3

REPORT INFORMATION
  Report Type: Spontaneous
  Country: US (occurrence: US)
  Receive Date: 20170704
  Receipt Date: 20170704
  Transmission Date: 20171127
  Serious: Yes (Disabling)
  Sender: FDA-Public Use
  Company Number: None

PATIENT
  Age: 48 Year
  Sex: Female
  Weight: 63 kg

DRUGS (6)
  1. LEVOFLOXACIN. [Suspect]
     Active Substance: LEVOFLOXACIN
     Indication: SINUSITIS
     Dosage: ?          OTHER STRENGTH:MG;QUANTITY:7 TABLET(S);?
     Route: 048
  2. DICLOFENAC SOD EC [Concomitant]
     Active Substance: DICLOFENAC SODIUM
  3. ESCITALOPRAM [Concomitant]
     Active Substance: ESCITALOPRAM OXALATE
  4. VITAMIN D [Concomitant]
     Active Substance: CHOLECALCIFEROL
  5. ZOLPIDEM [Concomitant]
     Active Substance: ZOLPIDEM\ZOLPIDEM TARTRATE
  6. CENTRUM MULTIVITAMIN [Concomitant]

REACTIONS (17)
  - Tendon pain [None]
  - Depression [None]
  - Hypoacusis [None]
  - Hypogeusia [None]
  - Insomnia [None]
  - Hyposmia [None]
  - Pain [None]
  - Paraesthesia [None]
  - Visual impairment [None]
  - Muscular weakness [None]
  - Tendonitis [None]
  - Vitreous floaters [None]
  - Amnesia [None]
  - Fatigue [None]
  - Anxiety [None]
  - Asthenia [None]
  - Rash [None]

NARRATIVE: CASE EVENT DATE: 20130314
